FAERS Safety Report 8488055-9 (Version None)
Quarter: 2012Q3

REPORT INFORMATION
  Report Type: 
  Country: None (occurrence: None)
  Receive Date: 20120705
  Receipt Date: 20120627
  Transmission Date: 20120928
  Serious: Yes (Hospitalization)
  Sender: FDA-Public Use
  Company Number: TR-BRISTOL-MYERS SQUIBB COMPANY-16719395

PATIENT
  Age: 65 Year
  Sex: Male
  Weight: 74 kg

DRUGS (9)
  1. PEMETREXED DISODIUM [Suspect]
     Indication: NON-SMALL CELL LUNG CANCER STAGE III
     Dosage: LAST DOSE ON 11JUN12
     Route: 042
     Dates: start: 20120521
  2. FOLIC ACID [Concomitant]
     Indication: PROPHYLAXIS
  3. CISPLATIN [Suspect]
     Indication: NON-SMALL CELL LUNG CANCER STAGE III
     Dosage: LAST DOSE ON 11JUN12
     Route: 042
     Dates: start: 20120521
  4. MYCOSTATIN [Concomitant]
     Indication: ODYNOPHAGIA
     Dates: start: 20120604, end: 20120611
  5. ANTEPSIN [Concomitant]
     Indication: MUCOSAL INFLAMMATION
     Dates: start: 20120528
  6. NOVALGIN [Concomitant]
     Dates: start: 20120604
  7. VITAMIN B-12 [Concomitant]
     Indication: PROPHYLAXIS
  8. DEXAMETHASONE SODIUM PHOSPHATE [Concomitant]
     Indication: PROPHYLAXIS
  9. ANTEPSIN [Concomitant]
     Indication: OESOPHAGITIS
     Dates: start: 20120528

REACTIONS (3)
  - LYMPHOPENIA [None]
  - WEIGHT DECREASED [None]
  - LEUKOPENIA [None]
